FAERS Safety Report 13784840 (Version 1)
Quarter: 2017Q3

REPORT INFORMATION
  Report Type: Spontaneous
  Country: US (occurrence: US)
  Receive Date: 20170725
  Receipt Date: 20170725
  Transmission Date: 20171127
  Serious: No
  Sender: FDA-Public Use
  Company Number: US-UNITED THERAPEUTICS-UNT-2017-003587

PATIENT
  Sex: Female
  Weight: 74.83 kg

DRUGS (1)
  1. REMODULIN [Suspect]
     Active Substance: TREPROSTINIL
     Indication: PULMONARY HYPERTENSION
     Dosage: 0.01 ?G/KG, CONTINUING
     Route: 058
     Dates: start: 20170202

REACTIONS (1)
  - Nasal congestion [Recovered/Resolved]
